FAERS Safety Report 13953595 (Version 6)
Quarter: 2018Q4

REPORT INFORMATION
  Report Type: Spontaneous
  Country: CA (occurrence: CA)
  Receive Date: 20170911
  Receipt Date: 20181204
  Transmission Date: 20190204
  Serious: Yes (Hospitalization, Other)
  Sender: FDA-Public Use
  Company Number: CA-CELLTRION INC.-2017CA004763

PATIENT

DRUGS (9)
  1. CALCIUM [Concomitant]
     Active Substance: CALCIUM
     Dosage: UNK
  2. FRAGMIN [Suspect]
     Active Substance: DALTEPARIN SODIUM
     Indication: PRODUCT USED FOR UNKNOWN INDICATION
     Dosage: 100 IU/KG, BID (2X/DAY)
     Route: 058
     Dates: start: 20170329
  3. ELIQUIS [Suspect]
     Active Substance: APIXABAN
     Indication: PRODUCT USED FOR UNKNOWN INDICATION
     Dosage: UNK
  4. PREDNISONE                         /00044702/ [Concomitant]
     Active Substance: PREDNISONE
     Dosage: UNK
  5. ADVIL (MEFENAMIC ACID) [Suspect]
     Active Substance: MEFENAMIC ACID
     Dosage: AS NEEDED
     Route: 065
  6. VITAMIN D                          /00107901/ [Concomitant]
     Active Substance: ERGOCALCIFEROL
     Dosage: UNK
  7. REMICADE [Concomitant]
     Active Substance: INFLIXIMAB
     Dosage: UNK
  8. INFLECTRA [Suspect]
     Active Substance: INFLIXIMAB-DYYB
     Indication: COLITIS ULCERATIVE
     Dosage: 300 MG,CYCLIC EVERY 2,6 WEEKS THEN EVERY 8 WEEKS FOR 12 MONTHS
     Route: 042
     Dates: start: 20170331, end: 20170912
  9. ADVIL [Concomitant]
     Active Substance: IBUPROFEN
     Indication: PAIN
     Dosage: UNK UNK, AS NEEDED

REACTIONS (26)
  - Hiatus hernia [Unknown]
  - International normalised ratio increased [Unknown]
  - Dysuria [Unknown]
  - Infrequent bowel movements [Unknown]
  - Pain in extremity [Unknown]
  - Dyspnoea exertional [Unknown]
  - Blood creatinine increased [Unknown]
  - Swelling [Unknown]
  - Off label use [Unknown]
  - Blood albumin decreased [Unknown]
  - Asthenia [Unknown]
  - Oedema peripheral [Unknown]
  - Compression fracture [Unknown]
  - Neutrophil count increased [Unknown]
  - Platelet count increased [Unknown]
  - Mobility decreased [Recovering/Resolving]
  - Abdominal pain [Unknown]
  - Rectal haemorrhage [Unknown]
  - Uterine leiomyoma [Unknown]
  - C-reactive protein increased [Unknown]
  - Heart rate increased [Unknown]
  - Deep vein thrombosis [Unknown]
  - Chest pain [Unknown]
  - Haemorrhage [Unknown]
  - Hepatic steatosis [Unknown]
  - Drug effect incomplete [Unknown]

NARRATIVE: CASE EVENT DATE: 20170418
